FAERS Safety Report 11500563 (Version 5)
Quarter: 2016Q4

REPORT INFORMATION
  Report Type: Spontaneous
  Country: US (occurrence: US)
  Receive Date: 20150914
  Receipt Date: 20161121
  Transmission Date: 20170206
  Serious: No
  Sender: FDA-Public Use
  Company Number: US-PFIZER INC-2015293721

PATIENT
  Age: 68 Year
  Sex: Female

DRUGS (1)
  1. LYRICA [Suspect]
     Active Substance: PREGABALIN
     Indication: PAIN
     Dosage: 75 MG, 2X/DAY
     Dates: start: 20150930

REACTIONS (4)
  - Pain in extremity [Unknown]
  - Pain [Recovered/Resolved]
  - Stress [Unknown]
  - Fall [Unknown]

NARRATIVE: CASE EVENT DATE: 20150930
